FAERS Safety Report 5009405-1 (Version None)
Quarter: 2006Q2

REPORT INFORMATION
  Report Type: 
  Country: None (occurrence: None)
  Receive Date: 20060522
  Receipt Date: 20060509
  Transmission Date: 20061013
  Serious: Yes (Hospitalization, Other)
  Sender: FDA-Public Use
  Company Number: 2006063567

PATIENT
  Age: 60 Year
  Sex: Male
  Weight: 74.8435 kg

DRUGS (1)
  1. CELEBREX [Suspect]
     Indication: ILL-DEFINED DISORDER
     Dosage: 400 MG (200 MG, 2 IN 1 D),
     Dates: start: 19990101, end: 20010101

REACTIONS (3)
  - CARDIAC OPERATION [None]
  - CEREBROVASCULAR ACCIDENT [None]
  - PHARMACEUTICAL PRODUCT COMPLAINT [None]
